FAERS Safety Report 4709532-X (Version None)
Quarter: 2005Q3

REPORT INFORMATION
  Report Type: 
  Country: None (occurrence: None)
  Receive Date: 20050707
  Receipt Date: 20050630
  Transmission Date: 20060218
  Serious: Yes (Other)
  Sender: FDA-Public Use
  Company Number: 142021USA

PATIENT
  Age: 54 Year
  Sex: Female

DRUGS (2)
  1. COPAXONE [Suspect]
     Indication: MULTIPLE SCLEROSIS
     Dosage: 20 MILLIGRAM QD SUBCUTANEOUS
     Route: 058
     Dates: start: 20010115, end: 20050108
  2. PROTONIX [Concomitant]

REACTIONS (5)
  - INJECTION SITE MASS [None]
  - INJECTION SITE REACTION [None]
  - LEUKOPLAKIA [None]
  - VOCAL CORD DISORDER [None]
  - VOCAL CORD POLYP [None]
